FAERS Safety Report 9260716 (Version 1)
Quarter: 2013Q2

REPORT INFORMATION
  Report Type: Spontaneous
  Country: US (occurrence: US)
  Receive Date: 20130429
  Receipt Date: 20130429
  Transmission Date: 20140414
  Serious: Yes (Other)
  Sender: FDA-Public Use
  Company Number: US-PFIZER INC-2013132248

PATIENT
  Age: 42 Year
  Sex: Female
  Weight: 95.24 kg

DRUGS (2)
  1. LYRICA [Suspect]
     Indication: FIBROMYALGIA
     Dosage: 200 MG, 3X/DAY
     Route: 048
  2. EFFEXOR [Concomitant]
     Dosage: UNK

REACTIONS (6)
  - Weight increased [Unknown]
  - Activities of daily living impaired [Unknown]
  - Visual impairment [Unknown]
  - Pain [Unknown]
  - Impaired work ability [Unknown]
  - Intentional drug misuse [Unknown]
